FAERS Safety Report 8839247 (Version 1)
Quarter: 2012Q4

REPORT INFORMATION
  Report Type: 
  Country: NL (occurrence: NL)
  Receive Date: 20121015
  Receipt Date: 20121015
  Transmission Date: 20130627
  Serious: Yes (Life-Threatening, Hospitalization)
  Sender: FDA-Public Use
  Company Number: NL-JNJFOC-20121003507

PATIENT
  Sex: Female

DRUGS (4)
  1. REMICADE [Suspect]
     Indication: RHEUMATOID ARTHRITIS
     Route: 042
     Dates: start: 20010326, end: 20020124
  2. FEVARIN [Concomitant]
     Route: 065
  3. DICLOFENAC [Concomitant]
     Dosage: dosage 150 mg
     Route: 065
  4. OMEPRAZOLE [Concomitant]
     Dosage: dosage 150 mg
     Route: 065

REACTIONS (2)
  - Leukocytoclastic vasculitis [Recovered/Resolved]
  - Lupus-like syndrome [Recovered/Resolved]
